FAERS Safety Report 6820536-3 (Version None)
Quarter: 2010Q3

REPORT INFORMATION
  Report Type: 
  Country: None (occurrence: None)
  Receive Date: 20100707
  Receipt Date: 20100625
  Transmission Date: 20110219
  Serious: Yes (Hospitalization, Other)
  Sender: FDA-Public Use
  Company Number: AU-WYE-G06323310

PATIENT
  Sex: Female

DRUGS (5)
  1. PRISTIQ [Suspect]
     Indication: DEPRESSION
     Dosage: INITIATED AT AN UNKNOWN DOSE, INCREASED TO 150MG THEN TO 200MG, REDUCED TO 100MG THEN TO 50MG, CEASE
     Route: 048
  2. EFFEXOR [Suspect]
  3. VALIUM [Concomitant]
  4. QUETIAPINE [Concomitant]
     Dosage: 200MG NOCTE
  5. MIRTAZAPINE [Concomitant]

REACTIONS (12)
  - AGITATION [None]
  - CHEST PAIN [None]
  - CONDITION AGGRAVATED [None]
  - DISSOCIATION [None]
  - DIZZINESS [None]
  - DRUG WITHDRAWAL SYNDROME [None]
  - FALL [None]
  - INSOMNIA [None]
  - NAUSEA [None]
  - SUICIDAL IDEATION [None]
  - SUICIDE ATTEMPT [None]
  - TACHYCARDIA [None]
